FAERS Safety Report 7052005-2 (Version None)
Quarter: 2010Q4

REPORT INFORMATION
  Report Type: 
  Country: None (occurrence: None)
  Receive Date: 20101019
  Receipt Date: 20101012
  Transmission Date: 20110411
  Serious: Yes (Other)
  Sender: FDA-Public Use
  Company Number: B0680045A

PATIENT
  Age: 59 Year
  Sex: Male

DRUGS (4)
  1. ARIXTRA [Suspect]
     Indication: MESENTERIC ARTERY THROMBOSIS
     Dosage: 7.5MG PER DAY
     Route: 058
     Dates: start: 20090701, end: 20100701
  2. ARIXTRA [Suspect]
     Dosage: 2.5MG PER DAY
     Route: 058
     Dates: start: 20100701
  3. UNKNOWN [Concomitant]
     Indication: BLOOD HOMOCYSTEINE DECREASED
  4. PRILOSEC [Concomitant]

REACTIONS (2)
  - EYE HAEMORRHAGE [None]
  - VITREOUS DETACHMENT [None]
